FAERS Safety Report 15390116 (Version 1)
Quarter: 2018Q3

REPORT INFORMATION
  Report Type: Spontaneous
  Country: US (occurrence: US)
  Receive Date: 20180917
  Receipt Date: 20180917
  Transmission Date: 20181010
  Serious: Yes (Hospitalization, Other)
  Sender: FDA-Public Use
  Company Number: US-009507513-1809USA003225

PATIENT
  Age: 17 Month
  Sex: Female

DRUGS (12)
  1. ELSPAR [Suspect]
     Active Substance: ASPARAGINASE
     Indication: LEUKAEMIA CUTIS
     Dosage: UNK
  2. CYCLOPHOSPHAMIDE. [Suspect]
     Active Substance: CYCLOPHOSPHAMIDE
     Indication: LEUKAEMIA CUTIS
     Dosage: UNK
  3. HYDROCORTISONE. [Suspect]
     Active Substance: HYDROCORTISONE
     Indication: LEUKAEMIA CUTIS
     Dosage: UNK
     Route: 037
  4. METHOTREXATE. [Suspect]
     Active Substance: METHOTREXATE
     Indication: LEUKAEMIA CUTIS
     Dosage: UNK
     Route: 037
  5. LESTAURTINIB [Suspect]
     Active Substance: LESTAURTINIB
     Indication: LEUKAEMIA CUTIS
     Dosage: UNK
  6. ETOPOSIDE. [Suspect]
     Active Substance: ETOPOSIDE
     Indication: LEUKAEMIA CUTIS
     Dosage: UNK
  7. ARA?C [Suspect]
     Active Substance: CYTARABINE
     Indication: LEUKAEMIA CUTIS
     Dosage: UNK
     Route: 037
  8. VINCRISTINE [Suspect]
     Active Substance: VINCRISTINE
     Indication: LEUKAEMIA CUTIS
     Dosage: UNK
  9. METHYLPREDNISOLONE. [Suspect]
     Active Substance: METHYLPREDNISOLONE
     Indication: LEUKAEMIA CUTIS
     Dosage: UNK
  10. METHOTREXATE. [Suspect]
     Active Substance: METHOTREXATE
     Route: 037
  11. DAUNORUBICIN [Suspect]
     Active Substance: DAUNORUBICIN
     Indication: LEUKAEMIA CUTIS
     Dosage: UNK
  12. GRANULOCYTE COLONY STIMULATING FACTOR (UNSPECIFIED) [Suspect]
     Active Substance: FILGRASTIM
     Indication: LEUKAEMIA CUTIS
     Dosage: UNK

REACTIONS (1)
  - Combined immunodeficiency [Recovered/Resolved]
